FAERS Safety Report 8808639 (Version 1)
Quarter: 2012Q4

REPORT INFORMATION
  Report Type: Spontaneous
  Country: US (occurrence: None)
  Receive Date: 20120919
  Receipt Date: 20120919
  Transmission Date: 20130627
  Serious: Yes (Hospitalization)
  Sender: FDA-Public Use
  Company Number: 2012GMK003462

PATIENT
  Age: 56 Year
  Sex: Female

DRUGS (8)
  1. TOPIRAMATE [Suspect]
     Indication: MIGRAINE AGGRAVATED
  2. TOPIRAMATE [Suspect]
     Indication: MIGRAINE AGGRAVATED
  3. VENLAFAXINE [Concomitant]
  4. ATORVASTATIN (ATORVASTATIN) [Concomitant]
  5. BUSPIRONE HYDROCHLORIDE (BUSPIRONE HYDROCHLORIDE) [Concomitant]
  6. MAXZIDE (HYDROCHLOROTHIAZIDE, TRIAMTERENE) [Concomitant]
  7. ESTRADIOL (ESTRADIOL) [Concomitant]
  8. PROGESTERONE (PROGESTERONE) [Concomitant]

REACTIONS (3)
  - Angle closure glaucoma [None]
  - Photophobia [None]
  - Blood pressure increased [None]
